FAERS Safety Report 7535216-9 (Version None)
Quarter: 2011Q2

REPORT INFORMATION
  Report Type: 
  Country: None (occurrence: None)
  Receive Date: 20110609
  Receipt Date: 20071130
  Transmission Date: 20111010
  Serious: Yes (Death)
  Sender: FDA-Public Use
  Company Number: PHHO2007JP16241

PATIENT
  Sex: Female

DRUGS (3)
  1. LOCHOLEST [Suspect]
     Indication: HYPERCHOLESTEROLAEMIA
     Dosage: 20 MG, QD
     Route: 048
     Dates: start: 20010718, end: 20060125
  2. CONIEL [Suspect]
     Dosage: 4 MG, QD
  3. ACECOL [Suspect]
     Dosage: 4 MG, QD

REACTIONS (1)
  - SUDDEN DEATH [None]
